FAERS Safety Report 24553396 (Version 1)
Quarter: 2024Q4

REPORT INFORMATION
  Report Type: Report from Study
  Country: US (occurrence: US)
  Receive Date: 20241028
  Receipt Date: 20241028
  Transmission Date: 20250115
  Serious: No
  Sender: ROCHE
  Company Number: US-ROCHE-3498517

PATIENT
  Sex: Female
  Weight: 17.8 kg

DRUGS (2)
  1. NUTROPIN AQ [Suspect]
     Active Substance: SOMATROPIN
     Indication: Short stature homeobox gene mutation
     Dosage: 6XWEEK
     Route: 058
     Dates: start: 20230201
  2. NUTROPIN AQ [Suspect]
     Active Substance: SOMATROPIN
     Indication: Growth hormone deficiency

REACTIONS (4)
  - Tooth loss [Unknown]
  - Stomatitis [Unknown]
  - Polyuria [Unknown]
  - Weight gain poor [Unknown]
